FAERS Safety Report 9664126 (Version 1)
Quarter: 2013Q4

REPORT INFORMATION
  Report Type: Spontaneous
  Country: EE (occurrence: EE)
  Receive Date: 20131101
  Receipt Date: 20131101
  Transmission Date: 20140711
  Serious: Yes (Other)
  Sender: FDA-Public Use
  Company Number: EE-BAYER-2013-129673

PATIENT
  Age: 32 Year
  Sex: Female

DRUGS (1)
  1. MIRENA [Suspect]
     Indication: CONTRACEPTION
     Dosage: 20 MCG/24HR, CONT
     Route: 067
     Dates: start: 20131009, end: 20131011

REACTIONS (4)
  - Rash generalised [Not Recovered/Not Resolved]
  - Headache [Unknown]
  - Lip oedema [Not Recovered/Not Resolved]
  - Localised oedema [Not Recovered/Not Resolved]
